FAERS Safety Report 20227789 (Version 2)
Quarter: 2022Q1

REPORT INFORMATION
  Report Type: Other
  Country: CA (occurrence: CA)
  Receive Date: 20211224
  Receipt Date: 20220222
  Transmission Date: 20220423
  Serious: Yes (Other)
  Sender: FDA-Public Use
  Company Number: CA-NAPPMUNDI-GBR-2021-0093692

PATIENT
  Age: 84 Year
  Sex: Male

DRUGS (16)
  1. MORPHINE SULFATE [Suspect]
     Active Substance: MORPHINE SULFATE
     Indication: Cauda equina syndrome
     Dosage: 15 MG, BID [2 EVERY 1 DAYS]
     Route: 065
  2. MORPHINE SULFATE [Suspect]
     Active Substance: MORPHINE SULFATE
     Indication: Cancer pain
     Dosage: 15 MG, Q12H
     Route: 065
  3. ACETAMINOPHEN [Suspect]
     Active Substance: ACETAMINOPHEN
     Indication: Cauda equina syndrome
     Dosage: 1000 MG, Q6H
     Route: 065
  4. ACETAMINOPHEN [Suspect]
     Active Substance: ACETAMINOPHEN
     Indication: Cancer pain
     Dosage: 1000 MG, UNK
     Route: 065
  5. ACETAMINOPHEN [Suspect]
     Active Substance: ACETAMINOPHEN
     Indication: Pain
     Dosage: 1000 MG, Q6H
     Route: 065
  6. ACETAMINOPHEN [Suspect]
     Active Substance: ACETAMINOPHEN
     Dosage: 1000 MG, QID
     Route: 065
  7. ACETAMINOPHEN [Suspect]
     Active Substance: ACETAMINOPHEN
     Dosage: UNK
     Route: 065
  8. DEXAMETHASONE [Suspect]
     Active Substance: DEXAMETHASONE
     Indication: Cauda equina syndrome
     Dosage: 8 MG, BID
     Route: 065
  9. DEXAMETHASONE [Suspect]
     Active Substance: DEXAMETHASONE
     Indication: Cancer pain
     Dosage: UNK
     Route: 065
  10. DEXAMETHASONE [Suspect]
     Active Substance: DEXAMETHASONE
     Indication: Pain
     Dosage: 8 MG, Q12H
     Route: 065
  11. METHADONE [Suspect]
     Active Substance: METHADONE HYDROCHLORIDE
     Indication: Cauda equina syndrome
     Dosage: 2 MG, BID
     Route: 065
  12. METHADONE [Suspect]
     Active Substance: METHADONE HYDROCHLORIDE
     Indication: Cancer pain
     Dosage: 2 MG, Q12H
     Route: 065
  13. METHADONE [Suspect]
     Active Substance: METHADONE HYDROCHLORIDE
     Indication: Pain
     Dosage: UNK
     Route: 065
  14. PREGABALIN [Suspect]
     Active Substance: PREGABALIN
     Indication: Cauda equina syndrome
     Dosage: 100 MG, UNK
     Route: 065
  15. PREGABALIN [Suspect]
     Active Substance: PREGABALIN
     Indication: Cancer pain
     Dosage: 100 MG, DAILY
     Route: 065
  16. PREGABALIN [Suspect]
     Active Substance: PREGABALIN
     Indication: Pain
     Dosage: UNK
     Route: 065

REACTIONS (5)
  - Delirium [Unknown]
  - Therapeutic product effect incomplete [Unknown]
  - Somnolence [Unknown]
  - Off label use [Unknown]
  - Product use in unapproved indication [Unknown]
